FAERS Safety Report 8314455 (Version 5)
Quarter: 2013Q4

REPORT INFORMATION
  Report Type: Report from Study
  Country: PL (occurrence: PL)
  Receive Date: 20111228
  Receipt Date: 20131213
  Transmission Date: 20140711
  Serious: Yes (Hospitalization)
  Sender: FDA-Public Use
  Company Number: PL-ROCHE-1022108

PATIENT
  Age: 52 Year
  Sex: Female
  Weight: 68 kg

DRUGS (12)
  1. METHOXY POLYETHYLENE GLYCOL-EPOETIN BETA [Suspect]
     Indication: NEPHROGENIC ANAEMIA
     Route: 058
     Dates: start: 20110812
  2. METHOXY POLYETHYLENE GLYCOL-EPOETIN BETA [Suspect]
     Route: 058
     Dates: start: 20111010
  3. METHOXY POLYETHYLENE GLYCOL-EPOETIN BETA [Suspect]
     Route: 058
     Dates: start: 20111107
  4. METHOXY POLYETHYLENE GLYCOL-EPOETIN BETA [Suspect]
     Route: 058
     Dates: start: 20111205, end: 20111212
  5. OMEPRAZOLE [Concomitant]
     Route: 065
     Dates: start: 20070715, end: 20111212
  6. CALCIUM CARBONATE [Concomitant]
     Route: 065
     Dates: start: 20060524
  7. SIMVASTATIN [Concomitant]
     Route: 065
     Dates: start: 20090815, end: 20111212
  8. ACETYLSALICYLIC ACID [Concomitant]
     Route: 065
     Dates: start: 20090615
  9. FUROSEMIDE [Concomitant]
     Route: 065
     Dates: start: 20060524
  10. VITAMIN B COMPLEX [Concomitant]
     Route: 065
     Dates: start: 20090615
  11. CETRIZINE [Concomitant]
     Route: 065
     Dates: start: 20111101
  12. LORATIN [Concomitant]
     Route: 065
     Dates: start: 20111121, end: 20111212

REACTIONS (1)
  - Anaemia [Recovered/Resolved with Sequelae]
